FAERS Safety Report 25214258 (Version 2)
Quarter: 2025Q2

REPORT INFORMATION
  Report Type: Spontaneous
  Country: US (occurrence: US)
  Receive Date: 20250418
  Receipt Date: 20250522
  Transmission Date: 20250717
  Serious: Yes (Other)
  Sender: INTERNATIONAL MEDICATION SYSTEM
  Company Number: US-International Medication Systems, Limited-2175130

PATIENT
  Age: 33 Year
  Sex: Female
  Weight: 73.182 kg

DRUGS (1)
  1. PHYTONADIONE [Suspect]
     Active Substance: PHYTONADIONE

REACTIONS (2)
  - Injury associated with device [Unknown]
  - Device safety feature issue [Unknown]

NARRATIVE: CASE EVENT DATE: 20250207
